FAERS Safety Report 8555803 (Version 5)
Quarter: 2014Q3

REPORT INFORMATION
  Report Type: Spontaneous
  Country: JP (occurrence: None)
  Receive Date: 20120503
  Receipt Date: 20140725
  Transmission Date: 20150326
  Serious: Yes (Other)
  Sender: FDA-Public Use
  Company Number: ADR-2011-10531

PATIENT
  Age: 36 Year
  Sex: Female

DRUGS (2)
  1. GABALON [Suspect]
     Active Substance: BACLOFEN
     Dosage: 15 MG/DAY??SEE B5
     Dates: end: 20120816
  2. GABALON INTRATHECAL (BACLOFEN INJECTION) 0.005% 1 ML [Suspect]
     Active Substance: BACLOFEN
     Indication: MUSCLE RELAXANT THERAPY

REACTIONS (9)
  - Brain hypoxia [None]
  - Diffuse axonal injury [None]
  - Implant site extravasation [None]
  - Medical device complication [None]
  - Vomiting [None]
  - Implant site inflammation [None]
  - Medical device site reaction [None]
  - White blood cell count increased [None]
  - Nausea [None]
